FAERS Safety Report 10228456 (Version 2)
Quarter: 2014Q2

REPORT INFORMATION
  Report Type: Report from Study
  Country: US (occurrence: US)
  Receive Date: 20140610
  Receipt Date: 20140610
  Transmission Date: 20141212
  Serious: Yes (Other)
  Sender: FDA-Public Use
  Company Number: PHEH2014US009325

PATIENT
  Age: 58 Year
  Sex: Male

DRUGS (3)
  1. TOBI PODHALER [Suspect]
     Indication: CYSTIC FIBROSIS
     Dosage: 112 MG, BID (TWICE A DAY)
     Route: 055
     Dates: start: 201310, end: 201310
  2. TOBI [Suspect]
     Indication: CYSTIC FIBROSIS
     Dosage: 300 MG PER 5 ML, BID (28 DAYS ON AND 28 DAYS OFF)
     Route: 055
     Dates: start: 201405, end: 201405
  3. DIGESTIVE [Concomitant]
     Dosage: UNK

REACTIONS (3)
  - Respiratory distress [Recovered/Resolved]
  - Respiratory disorder [Recovered/Resolved]
  - Malaise [Recovered/Resolved]
